FAERS Safety Report 26142532 (Version 1)
Quarter: 2025Q4

REPORT INFORMATION
  Report Type: Report from Study
  Country: US (occurrence: US)
  Receive Date: 20251210
  Receipt Date: 20251210
  Transmission Date: 20260117
  Serious: Yes (Other)
  Sender: ABBVIE
  Company Number: US-ABBVIE-6499640

PATIENT
  Age: 69 Year
  Sex: Female
  Weight: 88 kg

DRUGS (2)
  1. RINVOQ [Suspect]
     Active Substance: UPADACITINIB
     Indication: Rheumatoid arthritis
     Route: 048
     Dates: start: 20200316
  2. RINVOQ [Suspect]
     Active Substance: UPADACITINIB
     Indication: Rheumatoid arthritis
     Route: 048
     Dates: start: 20250615

REACTIONS (15)
  - Knee arthroplasty [Unknown]
  - Intermittent claudication [Unknown]
  - Deep vein thrombosis [Recovered/Resolved]
  - May-Thurner syndrome [Recovered/Resolved]
  - Skin warm [Unknown]
  - Erythema [Unknown]
  - Skin discolouration [Unknown]
  - Pulse absent [Unknown]
  - Paraesthesia [Unknown]
  - Red cell distribution width increased [Unknown]
  - Monocyte percentage increased [Unknown]
  - Iliac vein occlusion [Unknown]
  - Osteoarthritis [Unknown]
  - Joint effusion [Unknown]
  - Impaired quality of life [Unknown]

NARRATIVE: CASE EVENT DATE: 20250101
